FAERS Safety Report 9789286 (Version 4)
Quarter: 2014Q2

REPORT INFORMATION
  Report Type: Spontaneous
  Country: CA (occurrence: CA)
  Receive Date: 20131231
  Receipt Date: 20140408
  Transmission Date: 20141212
  Serious: Yes (Hospitalization, Other)
  Sender: FDA-Public Use
  Company Number: CA-BAXTER-2013BAX050806

PATIENT
  Age: 66 Year
  Sex: Male

DRUGS (8)
  1. DIANEAL PD4 SOLUTION WITH 1.5% DEXTROSE AND 2.5 MEQ/L CALCIUM [Suspect]
     Indication: PERITONEAL DIALYSIS
     Dosage: 3 BAGS
     Route: 033
     Dates: start: 201309
  2. DIANEAL PD4 SOLUTION WITH 1.5% DEXTROSE AND 2.5 MEQ/L CALCIUM [Suspect]
     Route: 033
  3. DIANEAL PD4 SOLUTION WITH 2.5% DEXTROSE AND 2.5 MEQ/L CALCIUM [Suspect]
     Indication: PERITONEAL DIALYSIS
     Dosage: 1 BAG
     Route: 033
     Dates: start: 201309
  4. DIANEAL PD4 SOLUTION WITH 2.5% DEXTROSE AND 2.5 MEQ/L CALCIUM [Suspect]
     Route: 033
  5. EXTRANEAL [Suspect]
     Indication: PERITONEAL DIALYSIS
     Dosage: 1 BAG
     Route: 033
     Dates: start: 201309
  6. EXTRANEAL [Suspect]
     Route: 033
  7. WARFARIN [Suspect]
     Indication: PRODUCT USED FOR UNKNOWN INDICATION
  8. WARFARIN [Suspect]
     Indication: WOUND HAEMORRHAGE

REACTIONS (13)
  - Wound haemorrhage [Recovering/Resolving]
  - Gangrene [Not Recovered/Not Resolved]
  - Localised infection [Recovering/Resolving]
  - Peripheral ischaemia [Recovering/Resolving]
  - Anaemia [Unknown]
  - Peritoneal dialysis complication [Unknown]
  - Wrong drug administered [Unknown]
  - Peritoneal dialysis complication [Unknown]
  - Impaired healing [Unknown]
  - Dry skin [Recovering/Resolving]
  - Skin exfoliation [Recovering/Resolving]
  - Dehydration [Recovering/Resolving]
  - Hypotension [Recovered/Resolved]
